FAERS Safety Report 15453999 (Version 5)
Quarter: 2020Q1

REPORT INFORMATION
  Report Type: Report from Study
  Country: DE (occurrence: DE)
  Receive Date: 20181002
  Receipt Date: 20200210
  Transmission Date: 20200409
  Serious: Yes (Death, Other)
  Sender: FDA-Public Use
  Company Number: DE-BEH-2018094896

PATIENT
  Age: 81 Year
  Sex: Female
  Weight: 71 kg

DRUGS (8)
  1. PRIVIGEN [Suspect]
     Active Substance: HUMAN IMMUNOGLOBULIN G
     Indication: IMMUNE THROMBOCYTOPENIC PURPURA
     Dosage: 10 G, TOT
     Route: 042
     Dates: start: 20160927
  2. SIMVASTATIN. [Concomitant]
     Active Substance: SIMVASTATIN
  3. PRIVIGEN [Suspect]
     Active Substance: HUMAN IMMUNOGLOBULIN G
     Dosage: 10 G, TOT
     Route: 042
     Dates: start: 20170323
  4. PRIVIGEN [Suspect]
     Active Substance: HUMAN IMMUNOGLOBULIN G
     Dosage: 10 G, TOT
     Route: 042
     Dates: start: 20170321
  5. PRIVIGEN [Suspect]
     Active Substance: HUMAN IMMUNOGLOBULIN G
     Dosage: 10 G, TOT
     Route: 042
     Dates: start: 20170322
  6. HCT [Concomitant]
     Active Substance: HYDROCHLOROTHIAZIDE
  7. AZATHIOPRIN [Concomitant]
     Active Substance: AZATHIOPRINE
  8. L-THYROXIN [Concomitant]
     Active Substance: LEVOTHYROXINE SODIUM

REACTIONS (3)
  - Death [Fatal]
  - Intentional product use issue [Unknown]
  - Drug ineffective [Unknown]

NARRATIVE: CASE EVENT DATE: 20170913
